FAERS Safety Report 7726391-1 (Version None)
Quarter: 2011Q3

REPORT INFORMATION
  Report Type: 
  Country: None (occurrence: None)
  Receive Date: 20110831
  Receipt Date: 20110819
  Transmission Date: 20111222
  Serious: Yes (Hospitalization)
  Sender: FDA-Public Use
  Company Number: 20110603

PATIENT
  Age: 69 Year
  Sex: Male

DRUGS (2)
  1. TARDYFERON (IRON) [Concomitant]
  2. VENOFER [Suspect]
     Indication: IRON DEFICIENCY ANAEMIA
     Dosage: 300 MG, INTRAVENOUS
     Route: 042
     Dates: start: 20110621, end: 20110621

REACTIONS (3)
  - BACTERIAL TEST POSITIVE [None]
  - HAEMATURIA [None]
  - BACK PAIN [None]
